FAERS Safety Report 18638405 (Version 2)
Quarter: 2021Q1

REPORT INFORMATION
  Report Type: Report from Study
  Country: NL (occurrence: NL)
  Receive Date: 20201219
  Receipt Date: 20210323
  Transmission Date: 20210419
  Serious: Yes (Other)
  Sender: FDA-Public Use
  Company Number: NL-SHIRE-NL201810545

PATIENT

DRUGS (30)
  1. HUMAN IMMUNOGLOBULIN; HYALURONIDASE [Suspect]
     Active Substance: HUMAN IMMUNOGLOBULIN G\HYALURONIDASE RECOMBINANT HUMAN
     Dosage: 250 ML, 12.5 ML OF RHUPH20, ONE DOSE
     Route: 058
     Dates: start: 20161003
  2. HUMAN IMMUNOGLOBULIN; HYALURONIDASE [Suspect]
     Active Substance: HUMAN IMMUNOGLOBULIN G\HYALURONIDASE RECOMBINANT HUMAN
     Dosage: 300 ML, ONE DOSE
     Route: 058
     Dates: start: 20170123, end: 20170320
  3. HUMAN IMMUNOGLOBULIN; HYALURONIDASE [Suspect]
     Active Substance: HUMAN IMMUNOGLOBULIN G\HYALURONIDASE RECOMBINANT HUMAN
     Dosage: 350 ML, ONE DOSE
     Route: 058
     Dates: start: 20170417, end: 20170710
  4. HUMAN IMMUNOGLOBULIN; HYALURONIDASE [Suspect]
     Active Substance: HUMAN IMMUNOGLOBULIN G\HYALURONIDASE RECOMBINANT HUMAN
     Dosage: 400 ML, ONE DOSE
     Route: 058
     Dates: start: 20170904, end: 20180611
  5. BETAMETHASON [Concomitant]
     Active Substance: BETAMETHASONE
     Indication: ECZEMA
  6. TRIAMCINOLON [Concomitant]
     Indication: HAEMORRHOIDS
  7. CODEINEFOSFAAT [Concomitant]
     Active Substance: CODEINE PHOSPHATE
     Indication: PRODUCT USED FOR UNKNOWN INDICATION
  8. ISOSORBIDEDINITRAAT [Concomitant]
     Indication: HAEMORRHOIDS
  9. HUMAN IMMUNOGLOBULIN; HYALURONIDASE [Suspect]
     Active Substance: HUMAN IMMUNOGLOBULIN G\HYALURONIDASE RECOMBINANT HUMAN
     Indication: IMMUNODEFICIENCY COMMON VARIABLE
     Dosage: 250 ML, 12.5 ML OF RHUPH20 EVERY 4 WK
     Route: 058
     Dates: start: 20151228, end: 20160321
  10. HUMAN IMMUNOGLOBULIN; HYALURONIDASE [Suspect]
     Active Substance: HUMAN IMMUNOGLOBULIN G\HYALURONIDASE RECOMBINANT HUMAN
     Dosage: 300 ML, ONE DOSE
     Route: 058
     Dates: start: 20170807, end: 20170807
  11. LIDOCAINE. [Concomitant]
     Active Substance: LIDOCAINE
     Indication: HAEMORRHOIDS
  12. RIBAVIRINE MYLAN [Concomitant]
     Active Substance: RIBAVIRIN
     Indication: VIRAL INFECTION
  13. HUMAN IMMUNOGLOBULIN; HYALURONIDASE [Suspect]
     Active Substance: HUMAN IMMUNOGLOBULIN G\HYALURONIDASE RECOMBINANT HUMAN
     Dosage: 250 ML, ONE DOSE
     Route: 058
     Dates: start: 20160418, end: 20161227
  14. HUMAN IMMUNOGLOBULIN; HYALURONIDASE [Suspect]
     Active Substance: HUMAN IMMUNOGLOBULIN G\HYALURONIDASE RECOMBINANT HUMAN
     Dosage: 250 ML, ONE DOSE
     Route: 058
     Dates: start: 20180712, end: 20180712
  15. HUMAN IMMUNOGLOBULIN; HYALURONIDASE [Suspect]
     Active Substance: HUMAN IMMUNOGLOBULIN G\HYALURONIDASE RECOMBINANT HUMAN
     Dosage: 400 ML, ONE DOSE
     Route: 058
     Dates: start: 20180719, end: 20181029
  16. VASELINE CETOMACROGOL CREAM [Concomitant]
     Indication: HAEMORRHOIDS
  17. ALINIA [Concomitant]
     Active Substance: NITAZOXANIDE
     Indication: VIRAL INFECTION
  18. HUMAN IMMUNOGLOBULIN; HYALURONIDASE [Suspect]
     Active Substance: HUMAN IMMUNOGLOBULIN G\HYALURONIDASE RECOMBINANT HUMAN
     Dosage: 50 ML, ONE DOSE
     Route: 058
     Dates: start: 20151002, end: 20151102
  19. HUMAN IMMUNOGLOBULIN; HYALURONIDASE [Suspect]
     Active Substance: HUMAN IMMUNOGLOBULIN G\HYALURONIDASE RECOMBINANT HUMAN
     Dosage: 250 ML, ONE DOSE
     Route: 058
     Dates: start: 20151202, end: 20160321
  20. HUMAN IMMUNOGLOBULIN; HYALURONIDASE [Suspect]
     Active Substance: HUMAN IMMUNOGLOBULIN G\HYALURONIDASE RECOMBINANT HUMAN
     Dosage: 100 ML, ONE DOSE
     Route: 058
     Dates: start: 20151109, end: 20151116
  21. BETAMETHASON [Concomitant]
     Active Substance: BETAMETHASONE
     Indication: TINEA CAPITIS
  22. BETNELAN [Concomitant]
     Indication: ECZEMA
  23. KETOCONAZOLE. [Concomitant]
     Active Substance: KETOCONAZOLE
     Indication: ECZEMA
  24. DILTIAZEM. [Concomitant]
     Active Substance: DILTIAZEM
     Indication: HAEMORRHOIDS
  25. AMOXICILLIN CLAVULANIC ACID [Concomitant]
     Active Substance: AMOXICILLIN\CLAVULANIC ACID
     Indication: GINGIVITIS
  26. HYDROCORTISONE. [Concomitant]
     Active Substance: HYDROCORTISONE
     Indication: BLOOD CORTISOL
  27. MICONAZOLNITRAAT/HYDROCORTISON [Concomitant]
     Indication: ECZEMA
  28. KETOCONAZOLE. [Concomitant]
     Active Substance: KETOCONAZOLE
     Indication: PSORIASIS
  29. SELSUN [Concomitant]
     Active Substance: SELENIUM SULFIDE
     Indication: PRODUCT USED FOR UNKNOWN INDICATION
  30. THERANAL [Concomitant]
     Indication: HAEMORRHOIDS

REACTIONS (2)
  - Aphthous ulcer [Recovered/Resolved]
  - Vulvovaginal candidiasis [Not Recovered/Not Resolved]

NARRATIVE: CASE EVENT DATE: 20160330
